FAERS Safety Report 15255037 (Version 1)
Quarter: 2018Q3

REPORT INFORMATION
  Report Type: Report from Study
  Country: US (occurrence: US)
  Receive Date: 20180808
  Receipt Date: 20180808
  Transmission Date: 20181010
  Serious: Yes (Hospitalization)
  Sender: FDA-Public Use
  Company Number: US-JNJFOC-20180805985

PATIENT
  Age: 86 Year
  Sex: Male

DRUGS (17)
  1. IMBRUVICA [Suspect]
     Active Substance: IBRUTINIB
     Indication: CHRONIC LYMPHOCYTIC LEUKAEMIA
     Route: 048
     Dates: start: 20180607
  2. VITAMIN D [Concomitant]
     Active Substance: CHOLECALCIFEROL
  3. ISOSORBIDE. [Concomitant]
     Active Substance: ISOSORBIDE
  4. AMLODIPINE [Concomitant]
     Active Substance: AMLODIPINE BESYLATE
  5. RANEXA [Concomitant]
     Active Substance: RANOLAZINE
  6. FUROSEMIDE. [Concomitant]
     Active Substance: FUROSEMIDE
  7. FLOMAX [Concomitant]
     Active Substance: TAMSULOSIN HYDROCHLORIDE
  8. PANTOPRAZOLE SODIUM. [Concomitant]
     Active Substance: PANTOPRAZOLE SODIUM
  9. ALLOPURINOL. [Concomitant]
     Active Substance: ALLOPURINOL
  10. GLIMEPIRIDE. [Concomitant]
     Active Substance: GLIMEPIRIDE
  11. SYNTHROID [Concomitant]
     Active Substance: LEVOTHYROXINE SODIUM
  12. CALCITRIOL. [Concomitant]
     Active Substance: CALCITRIOL
  13. HYDROXYZINE HCL [Concomitant]
     Active Substance: HYDROXYZINE HYDROCHLORIDE
  14. SEROQUEL [Concomitant]
     Active Substance: QUETIAPINE FUMARATE
  15. IMBRUVICA [Suspect]
     Active Substance: IBRUTINIB
     Indication: CHRONIC LYMPHOCYTIC LEUKAEMIA
     Route: 048
     Dates: start: 20160503
  16. LIPITOR [Concomitant]
     Active Substance: ATORVASTATIN CALCIUM
  17. CLONIDINE. [Concomitant]
     Active Substance: CLONIDINE

REACTIONS (3)
  - Chest pain [Unknown]
  - Hospitalisation [Unknown]
  - Vomiting [Unknown]

NARRATIVE: CASE EVENT DATE: 2018
